FAERS Safety Report 12652594 (Version 7)
Quarter: 2023Q1

REPORT INFORMATION
  Report Type: Spontaneous
  Country: US (occurrence: US)
  Receive Date: 20160815
  Receipt Date: 20230316
  Transmission Date: 20230417
  Serious: Yes (Hospitalization, Other)
  Sender: FDA-Public Use
  Company Number: US-PFIZER INC-2016385767

PATIENT
  Age: 66 Year
  Sex: Male

DRUGS (4)
  1. BOSULIF [Suspect]
     Active Substance: BOSUTINIB MONOHYDRATE
     Indication: Chronic myeloid leukaemia
     Dosage: 500 MG
  2. BOSULIF [Suspect]
     Active Substance: BOSUTINIB MONOHYDRATE
     Dosage: DECREASED TO 300 MG
  3. BOSULIF [Suspect]
     Active Substance: BOSUTINIB MONOHYDRATE
     Dosage: 300 MG (200 MG ALTERNATING 300 MG/TAKE THREE PILLS 2 DAYS A WEEK AND 2 PILLS DAILY ON OTHER DAYS)
  4. BOSULIF [Suspect]
     Active Substance: BOSUTINIB MONOHYDRATE
     Dosage: 200 MG (200 MG ALTERNATING 300 MG/TAKE 3 PILLS TWO DAYS A WEEK AND 2 PILLS DAILY ON THE OTHER DAYS)

REACTIONS (5)
  - Diarrhoea [Unknown]
  - Thrombocytopenia [Unknown]
  - Rash [Unknown]
  - Off label use [Unknown]
  - Loss of personal independence in daily activities [Unknown]
